FAERS Safety Report 7341857-4 (Version None)
Quarter: 2011Q1

REPORT INFORMATION
  Report Type: 
  Country: None (occurrence: None)
  Receive Date: 20110309
  Receipt Date: 20110225
  Transmission Date: 20110831
  Serious: Yes (Hospitalization, Other)
  Sender: FDA-Public Use
  Company Number: US-CELGENEUS-163-21880-11010031

PATIENT
  Sex: Female

DRUGS (6)
  1. TYLENOL [Concomitant]
     Route: 065
  2. REVLIMID [Suspect]
     Dosage: 5 MILLIGRAM
     Route: 048
     Dates: start: 20110215
  3. REVLIMID [Suspect]
     Indication: MYELODYSPLASTIC SYNDROME
     Dosage: 5 MILLIGRAM
     Route: 048
     Dates: start: 20101206
  4. DILTIAZEM [Concomitant]
     Dosage: 180 MILLIGRAM
     Route: 065
  5. COUMADIN [Concomitant]
     Dosage: 2.5-5MG
     Route: 065
     Dates: end: 20110201
  6. ATIVAN [Concomitant]
     Indication: ANXIETY
     Dosage: 1 MILLIGRAM
     Route: 048

REACTIONS (10)
  - PNEUMONIA [None]
  - HYPOKALAEMIA [None]
  - DEHYDRATION [None]
  - DIARRHOEA [None]
  - HYPERBILIRUBINAEMIA [None]
  - VOMITING [None]
  - INTERNATIONAL NORMALISED RATIO INCREASED [None]
  - FULL BLOOD COUNT DECREASED [None]
  - HYPOTENSION [None]
  - ASTHENIA [None]
